FAERS Safety Report 5808198-5 (Version None)
Quarter: 2008Q3

REPORT INFORMATION
  Report Type: 
  Country: None (occurrence: None)
  Receive Date: 20080709
  Receipt Date: 20080630
  Transmission Date: 20090109
  Serious: Yes (Other)
  Sender: FDA-Public Use
  Company Number: CHPA2008US10890

PATIENT
  Age: 83 Year
  Sex: Female

DRUGS (1)
  1. MAALOX MS TOTAL STOMACH RELIEF [Suspect]
     Indication: DYSPEPSIA
     Dosage: ORAL
     Route: 048
     Dates: start: 20080624, end: 20080629

REACTIONS (2)
  - FAECES DISCOLOURED [None]
  - HAEMATOCHEZIA [None]
